FAERS Safety Report 7634518-5 (Version None)
Quarter: 2011Q3

REPORT INFORMATION
  Report Type: 
  Country: None (occurrence: None)
  Receive Date: 20110725
  Receipt Date: 20110719
  Transmission Date: 20111222
  Serious: Yes (Other)
  Sender: FDA-Public Use
  Company Number: BR-PFIZER INC-2011164273

PATIENT
  Age: 54 Year
  Sex: Female

DRUGS (4)
  1. LEVOTHYROXINE SODIUM [Concomitant]
     Indication: THYROID DISORDER
     Dosage: 112 MG (ONE TABLET), 1X/DAY
     Dates: start: 20101201
  2. ATENOLOL [Concomitant]
     Indication: BLOOD PRESSURE
     Dosage: 50 MG (ONE TABLET), 1X/DAY
     Dates: start: 20040101
  3. ESTRADIOL [Concomitant]
     Indication: HORMONE REPLACEMENT THERAPY
     Dosage: 1 MG, 1X/DAY
     Dates: start: 19810101
  4. LIPITOR [Suspect]
     Indication: BLOOD CHOLESTEROL INCREASED
     Dosage: 20 MG, 1X/DAY
     Route: 048
     Dates: start: 20070531, end: 20110701

REACTIONS (2)
  - PAIN [None]
  - MOVEMENT DISORDER [None]
